FAERS Safety Report 23827534 (Version 1)
Quarter: 2024Q2

REPORT INFORMATION
  Report Type: Spontaneous
  Country: US (occurrence: US)
  Receive Date: 20240507
  Receipt Date: 20240507
  Transmission Date: 20240715
  Serious: No
  Sender: FDA-Public Use
  Company Number: US-SANDOZ-SDZ2024US046012

PATIENT

DRUGS (2)
  1. CARVEDILOL [Suspect]
     Active Substance: CARVEDILOL
     Indication: Product used for unknown indication
     Dosage: 3 DF, BID (1 CARVEDILOL WITH MY ENTRESTO IN THE AM, THEN TAKE THE OTHER 2 AN HOUR LATER. SAME FOR TH
     Route: 065
  2. ENTRESTO [Suspect]
     Active Substance: SACUBITRIL\VALSARTAN
     Indication: Product used for unknown indication
     Dosage: UNK
     Route: 065

REACTIONS (4)
  - Brain fog [Unknown]
  - Fatigue [Unknown]
  - Drug intolerance [Unknown]
  - Incorrect dose administered [Unknown]
